FAERS Safety Report 24277884 (Version 2)
Quarter: 2024Q4

REPORT INFORMATION
  Report Type: Spontaneous
  Country: US (occurrence: US)
  Receive Date: 20240903
  Receipt Date: 20241104
  Transmission Date: 20250114
  Serious: Yes (Other)
  Sender: BAYER HEALTHCARE PHARMACEUTICALS INC.
  Company Number: US-BAYER-2024A124633

PATIENT
  Age: 68 Year
  Sex: Male

DRUGS (1)
  1. KOVALTRY [Suspect]
     Active Substance: ANTIHEMOPHILIC FACTOR, HUMAN RECOMBINANT
     Indication: Haemorrhage
     Dosage: 4250 IU, QD,INFUSE 4205 UNITS (+/-5%) EVERY 24 HOURS

REACTIONS (4)
  - Haemorrhage [None]
  - Fall [None]
  - Limb injury [None]
  - Joint injury [None]

NARRATIVE: CASE EVENT DATE: 20240717
